FAERS Safety Report 20593969 (Version 2)
Quarter: 2022Q2

REPORT INFORMATION
  Report Type: Spontaneous
  Country: US (occurrence: US)
  Receive Date: 20220315
  Receipt Date: 20220406
  Transmission Date: 20220721
  Serious: No
  Sender: FDA-Public Use
  Company Number: US-UNITED THERAPEUTICS-UNT-2022-005603

PATIENT
  Sex: Female
  Weight: 56.236 kg

DRUGS (5)
  1. ORENITRAM [Suspect]
     Active Substance: TREPROSTINIL
     Indication: Pulmonary arterial hypertension
     Dosage: UNK
     Route: 048
     Dates: start: 20220112
  2. ORENITRAM [Suspect]
     Active Substance: TREPROSTINIL
     Dosage: 5 MG (1 TABLET OF 5 MG), TID
     Route: 048
  3. ORENITRAM [Suspect]
     Active Substance: TREPROSTINIL
     Indication: Pulmonary arterial hypertension
     Dosage: UNK
     Route: 048
  4. CLINDAMYCIN [Suspect]
     Active Substance: CLINDAMYCIN
     Indication: Product used for unknown indication
     Dosage: UNK
     Route: 065
  5. WARFARIN SODIUM [Concomitant]
     Active Substance: WARFARIN SODIUM
     Indication: Product used for unknown indication
     Dosage: UNK
     Route: 065

REACTIONS (13)
  - Drug hypersensitivity [Unknown]
  - Vertigo [Unknown]
  - Vomiting [Unknown]
  - Dizziness [Unknown]
  - Eye disorder [Unknown]
  - Abdominal discomfort [Unknown]
  - Headache [Unknown]
  - Musculoskeletal discomfort [Unknown]
  - Flushing [Unknown]
  - Nutritional condition abnormal [Unknown]
  - Musculoskeletal chest pain [Unknown]
  - Decreased appetite [Unknown]
  - Fluid retention [Unknown]
